FAERS Safety Report 8219800-5 (Version None)
Quarter: 2012Q1

REPORT INFORMATION
  Report Type: 
  Country: None (occurrence: None)
  Receive Date: 20120319
  Receipt Date: 20120315
  Transmission Date: 20120608
  Serious: Yes (Hospitalization, Disabling, Other)
  Sender: FDA-Public Use
  Company Number: FR-ABBOTT-07P-056-0418798-00

PATIENT
  Sex: Male

DRUGS (68)
  1. NORVIR [Suspect]
     Dates: start: 20020318
  2. KALETRA [Suspect]
     Dates: start: 20030103
  3. KALETRA [Suspect]
     Dates: start: 20030912
  4. GABAPENTIN [Suspect]
     Indication: TRIGEMINAL NEURALGIA
     Route: 048
     Dates: start: 20060101
  5. TENOFOVIR DISOPROXIL FUMARATE [Suspect]
     Indication: ACQUIRED IMMUNODEFICIENCY SYNDROME
     Route: 048
     Dates: start: 20020318
  6. SAQUINAVIR [Suspect]
     Indication: ACQUIRED IMMUNODEFICIENCY SYNDROME
     Route: 048
     Dates: start: 19970319
  7. SULFAMETHOXAZOLE + TRIMETHOPRIM [Suspect]
     Indication: PRODUCT USED FOR UNKNOWN INDICATION
     Route: 048
     Dates: start: 19980901
  8. SULFAMETHOXAZOLE + TRIMETHOPRIM [Suspect]
     Dates: start: 20020318
  9. LAMIVUDINE + ZIDOVUDINE [Suspect]
     Dates: end: 20060623
  10. STAVUDINE [Concomitant]
     Dates: start: 20000606
  11. DIDANOSINE [Concomitant]
     Dates: start: 19970923
  12. LAMIVUDINE [Concomitant]
     Indication: PRODUCT USED FOR UNKNOWN INDICATION
     Dates: start: 19980401
  13. ATAZANAVIR [Concomitant]
     Dates: start: 20041015
  14. TENOFOVIR DISOPROXIL FUMARATE [Suspect]
     Dates: start: 20030103
  15. TENOFOVIR DISOPROXIL FUMARATE [Suspect]
     Dates: start: 20030912
  16. TENOFOVIR DISOPROXIL FUMARATE [Suspect]
     Dates: start: 20050617
  17. SULFAMETHOXAZOLE + TRIMETHOPRIM [Suspect]
     Dates: start: 20050928
  18. SULFAMETHOXAZOLE + TRIMETHOPRIM [Suspect]
     Dates: start: 20060623
  19. LAMIVUDINE + ZIDOVUDINE [Suspect]
     Dates: start: 20010323
  20. STAVUDINE [Concomitant]
     Dates: start: 19970923
  21. INDINIVIR SULFATE [Concomitant]
     Indication: PRODUCT USED FOR UNKNOWN INDICATION
     Dates: start: 20070617
  22. INDINIVIR SULFATE [Concomitant]
     Dates: start: 19990921
  23. DIDANOSINE [Concomitant]
     Indication: PRODUCT USED FOR UNKNOWN INDICATION
     Dates: start: 19970319
  24. DIDANOSINE [Concomitant]
     Dates: start: 19990921
  25. AMPRENAVIR [Concomitant]
     Dates: start: 20050928
  26. ZIDOVUDINE [Suspect]
     Dates: start: 20060623
  27. STAVUDINE [Concomitant]
     Dates: start: 19970617
  28. STAVUDINE [Concomitant]
     Dates: start: 19990921
  29. DIDANOSINE [Concomitant]
     Dates: start: 20000901
  30. AMPRENAVIR [Concomitant]
     Dates: start: 20050329
  31. ATAZANAVIR [Concomitant]
     Indication: PRODUCT USED FOR UNKNOWN INDICATION
     Dates: start: 20040417
  32. CYAMEMAZINE [Concomitant]
     Indication: PRODUCT USED FOR UNKNOWN INDICATION
     Dates: start: 20041015
  33. NORVIR [Suspect]
     Dates: start: 20040417
  34. NORVIR [Suspect]
     Dates: start: 20041015
  35. NORVIR [Suspect]
     Dates: start: 20050928
  36. TENOFOVIR DISOPROXIL FUMARATE [Suspect]
     Dates: start: 20060623
  37. SAQUINAVIR [Suspect]
     Dates: start: 20060623
  38. DIDANOSINE [Concomitant]
     Dates: start: 19970617
  39. ENFUVIRTIDE [Concomitant]
     Indication: PRODUCT USED FOR UNKNOWN INDICATION
     Dates: start: 20030912
  40. ENFUVIRTIDE [Concomitant]
     Dates: start: 20040417
  41. NORVIR [Suspect]
     Dates: start: 20050329
  42. NORVIR [Suspect]
     Dates: start: 20060623
  43. ZIDOVUDINE [Suspect]
     Dates: start: 20050928
  44. TENOFOVIR DISOPROXIL FUMARATE [Suspect]
     Dates: start: 20040417
  45. PREGABALIN [Suspect]
     Indication: TRIGEMINAL NEURALGIA
     Route: 048
     Dates: start: 20060623, end: 20060713
  46. STAVUDINE [Concomitant]
     Indication: PRODUCT USED FOR UNKNOWN INDICATION
     Dates: start: 19970319
  47. STAVUDINE [Concomitant]
     Dates: start: 19980401
  48. STAVUDINE [Concomitant]
     Dates: start: 19990223
  49. INDINIVIR SULFATE [Concomitant]
     Dates: start: 20000606
  50. TENOFOVIR DISOPROXIL FUMARATE [Suspect]
     Dates: start: 20041015
  51. TENOFOVIR DISOPROXIL FUMARATE [Suspect]
     Dates: start: 20050928
  52. ABACAVIR [Concomitant]
     Indication: PRODUCT USED FOR UNKNOWN INDICATION
     Dates: start: 20041015
  53. NORVIR [Suspect]
     Indication: ACQUIRED IMMUNODEFICIENCY SYNDROME
     Route: 048
     Dates: start: 19990921
  54. NORVIR [Suspect]
     Dates: start: 20050617
  55. KALETRA [Suspect]
     Indication: HIV INFECTION
     Dates: start: 20000901
  56. ZIDOVUDINE [Suspect]
     Indication: ACQUIRED IMMUNODEFICIENCY SYNDROME
     Route: 048
     Dates: start: 19920101, end: 19970101
  57. SULFAMETHOXAZOLE + TRIMETHOPRIM [Suspect]
     Dates: start: 19981027
  58. LAMIVUDINE + ZIDOVUDINE [Suspect]
     Indication: ACQUIRED IMMUNODEFICIENCY SYNDROME
     Route: 048
     Dates: start: 19990511, end: 19990801
  59. AMITRIPTYLINE HCL [Concomitant]
     Indication: PRODUCT USED FOR UNKNOWN INDICATION
     Dates: start: 20041015
  60. NORVIR [Suspect]
     Dates: start: 20000606
  61. NORVIR [Suspect]
     Dates: start: 20010323
  62. ZIDOVUDINE [Suspect]
     Dates: start: 20050617
  63. TENOFOVIR DISOPROXIL FUMARATE [Suspect]
     Dates: start: 20050329
  64. FOSAMPRENAVIR CALCIUM [Suspect]
     Indication: ACQUIRED IMMUNODEFICIENCY SYNDROME
     Route: 048
     Dates: start: 20050329, end: 20060623
  65. LAMIVUDINE + ZIDOVUDINE [Suspect]
     Dates: start: 20050928
  66. LAMIVUDINE [Concomitant]
     Dates: start: 20000901
  67. AMPRENAVIR [Concomitant]
     Indication: PRODUCT USED FOR UNKNOWN INDICATION
     Dates: start: 20010323
  68. AMPRENAVIR [Concomitant]
     Dates: start: 20050617

REACTIONS (25)
  - TREATMENT NONCOMPLIANCE [None]
  - VISUAL IMPAIRMENT [None]
  - SCOTOMA [None]
  - LEUKOENCEPHALOPATHY [None]
  - PSORIASIS [None]
  - MASS [None]
  - ASTHENIA [None]
  - MEMORY IMPAIRMENT [None]
  - TOXICITY TO VARIOUS AGENTS [None]
  - VIRAL LOAD INCREASED [None]
  - AIDS ENCEPHALOPATHY [None]
  - MONONEUROPATHY [None]
  - ANOGENITAL WARTS [None]
  - GLAUCOMA [None]
  - VISUAL ACUITY REDUCED [None]
  - CD4 LYMPHOCYTES ABNORMAL [None]
  - OPTIC NEURITIS [None]
  - VIRAL LOAD DECREASED [None]
  - NEURALGIA [None]
  - OPTIC ATROPHY [None]
  - SENSORY DISTURBANCE [None]
  - TRIGEMINAL NEURALGIA [None]
  - BALANCE DISORDER [None]
  - OPTIC NEUROPATHY [None]
  - VISUAL FIELD DEFECT [None]
